FAERS Safety Report 5369745-3 (Version None)
Quarter: 2007Q2

REPORT INFORMATION
  Report Type: 
  Country: None (occurrence: None)
  Receive Date: 20070625
  Receipt Date: 20070614
  Transmission Date: 20071010
  Serious: Yes (Other)
  Sender: FDA-Public Use
  Company Number: FR-PFIZER INC-2007049678

PATIENT
  Age: 36 Year
  Sex: Male

DRUGS (5)
  1. LYRICA [Suspect]
     Indication: POLYNEUROPATHY
  2. NEURONTIN [Suspect]
  3. LAROXYL [Concomitant]
     Dates: start: 20050101
  4. RIVOTRIL [Concomitant]
  5. TRAMADOL HCL [Concomitant]

REACTIONS (2)
  - DERMATITIS ALLERGIC [None]
  - DRUG INEFFECTIVE [None]
